FAERS Safety Report 10760368 (Version 1)
Quarter: 2015Q1

REPORT INFORMATION
  Report Type: Spontaneous
  Country: IT (occurrence: IT)
  Receive Date: 20150204
  Receipt Date: 20150204
  Transmission Date: 20150721
  Serious: Yes (Hospitalization)
  Sender: FDA-Public Use
  Company Number: IT-AUROBINDO-AUR-APL-2015-00909

PATIENT
  Age: 64 Year
  Sex: Male

DRUGS (2)
  1. CARVEDILOL. [Suspect]
     Active Substance: CARVEDILOL
     Indication: ISCHAEMIC CARDIOMYOPATHY
     Dosage: 2.5 MG, DAILY
     Route: 048
     Dates: start: 20100101, end: 20141101
  2. TRIATEC                            /00885601/ [Suspect]
     Active Substance: RAMIPRIL
     Indication: ESSENTIAL HYPERTENSION
     Dosage: 2.5 MG, DAILY
     Route: 048
     Dates: start: 20100101, end: 20141101

REACTIONS (5)
  - Dysphonia [Unknown]
  - Face oedema [Unknown]
  - Palatal oedema [Unknown]
  - Dysphagia [Unknown]
  - Wheezing [Unknown]

NARRATIVE: CASE EVENT DATE: 20141101
